FAERS Safety Report 5753721-2 (Version None)
Quarter: 2008Q2

REPORT INFORMATION
  Report Type: 
  Country: None (occurrence: None)
  Receive Date: 20080530
  Receipt Date: 20080526
  Transmission Date: 20081010
  Serious: Yes (Life-Threatening, Hospitalization, Other)
  Sender: FDA-Public Use
  Company Number: DE-JNJFOC-20080500847

PATIENT
  Sex: Male
  Weight: 18.8 kg

DRUGS (5)
  1. LEUSTATIN [Suspect]
     Indication: MALIGNANT HISTIOCYTOSIS
     Route: 042
  2. TRIMETHOPRIM [Concomitant]
     Indication: INFECTION PROPHYLAXIS
     Route: 065
  3. AMPHOTERICIN B [Concomitant]
     Indication: INFECTION PROPHYLAXIS
     Route: 065
  4. VALPROATE SODIUM [Concomitant]
     Indication: EPILEPSY
     Route: 065
  5. SULFAMETHOXAZOL [Concomitant]
     Indication: INFECTION PROPHYLAXIS

REACTIONS (3)
  - BONE MARROW DISORDER [None]
  - DRUG INEFFECTIVE [None]
  - PANCYTOPENIA [None]
